FAERS Safety Report 5757803-0 (Version None)
Quarter: 2008Q2

REPORT INFORMATION
  Report Type: 
  Country: None (occurrence: None)
  Receive Date: 20080529
  Receipt Date: 20080522
  Transmission Date: 20081010
  Serious: Yes (Other)
  Sender: FDA-Public Use
  Company Number: 2008SP006369

PATIENT
  Age: 75 Year
  Sex: Female
  Weight: 54 kg

DRUGS (3)
  1. CLARITIN [Suspect]
     Indication: RHINITIS ALLERGIC
     Dosage: 10 MG; PO
     Route: 048
     Dates: start: 20080325, end: 20080325
  2. FLUNASE [Concomitant]
  3. PRANLUKAST [Concomitant]

REACTIONS (5)
  - ANAPHYLACTIC REACTION [None]
  - ARTHRALGIA [None]
  - CHEST PAIN [None]
  - DYSPNOEA [None]
  - PRURITUS GENERALISED [None]
